FAERS Safety Report 17958532 (Version 2)
Quarter: 2020Q3

REPORT INFORMATION
  Report Type: Report from Study
  Country: GB (occurrence: GB)
  Receive Date: 20200629
  Receipt Date: 20200707
  Transmission Date: 20201103
  Serious: Yes (Hospitalization)
  Sender: FDA-Public Use
  Company Number: GB-JNJFOC-20200537608

PATIENT
  Age: 71 Year
  Sex: Male

DRUGS (37)
  1. ABIRATERONE ACETATE. [Suspect]
     Active Substance: ABIRATERONE ACETATE
     Dosage: 4 WEEKS 1 DAY
     Route: 048
     Dates: start: 20191028, end: 20191125
  2. ABIRATERONE ACETATE. [Suspect]
     Active Substance: ABIRATERONE ACETATE
     Dosage: 4 WEEKS 0 DAYS
     Route: 048
     Dates: start: 20191126, end: 20191223
  3. ABIRATERONE ACETATE. [Suspect]
     Active Substance: ABIRATERONE ACETATE
     Dosage: 4 WEEKS 0 DAYS
     Route: 048
     Dates: start: 20200121, end: 20200217
  4. ABIRATERONE ACETATE. [Suspect]
     Active Substance: ABIRATERONE ACETATE
     Dosage: 4 WEEKS 1 DAY
     Route: 048
     Dates: start: 20200218, end: 20200317
  5. PREDNISOLONE. [Suspect]
     Active Substance: PREDNISOLONE
     Dosage: 4 WEEKS 0 DAYS
     Route: 048
     Dates: start: 20200318, end: 20200414
  6. INDAPAMIDE. [Concomitant]
     Active Substance: INDAPAMIDE
     Indication: HYPERTENSION
     Route: 048
  7. PREDNISOLONE. [Suspect]
     Active Substance: PREDNISOLONE
     Dosage: 4 WEEKS 0 DAYS
     Route: 048
     Dates: start: 20191224, end: 20200120
  8. PREDNISOLONE. [Suspect]
     Active Substance: PREDNISOLONE
     Route: 048
     Dates: start: 20200415, end: 20200604
  9. LOPERAMIDE [Concomitant]
     Active Substance: LOPERAMIDE
     Indication: DIARRHOEA
     Dosage: 1?4 TIMES DAY
     Route: 048
  10. ABIRATERONE ACETATE. [Suspect]
     Active Substance: ABIRATERONE ACETATE
     Dosage: 2 WEEKS 0 DAYS
     Route: 048
     Dates: start: 20190916, end: 20190929
  11. PREDNISOLONE. [Suspect]
     Active Substance: PREDNISOLONE
     Dosage: 4 WEEKS 0 DAYS
     Route: 048
     Dates: start: 20190722, end: 20190818
  12. BISOPROLOL [Concomitant]
     Active Substance: BISOPROLOL
     Indication: HYPERTENSION
     Route: 048
  13. PREDNISOLONE. [Suspect]
     Active Substance: PREDNISOLONE
     Indication: HORMONE-REFRACTORY PROSTATE CANCER
     Dosage: 4 WEEKS 2 DAYS
     Route: 048
     Dates: start: 20190513, end: 20190611
  14. PREDNISOLONE. [Suspect]
     Active Substance: PREDNISOLONE
     Dosage: 4 WEEKS 0 DAYS
     Route: 048
     Dates: start: 20191028, end: 20191124
  15. ESOMEPRAZOLE. [Concomitant]
     Active Substance: ESOMEPRAZOLE MAGNESIUM
     Indication: GASTROOESOPHAGEAL REFLUX DISEASE
     Route: 048
  16. DICLOMAX                           /00372302/ [Concomitant]
     Active Substance: DICLOFENAC SODIUM
     Indication: ARTHRITIS
     Route: 048
  17. ABIRATERONE ACETATE. [Suspect]
     Active Substance: ABIRATERONE ACETATE
     Indication: HORMONE-REFRACTORY PROSTATE CANCER
     Dosage: 4 WEEKS 1 DAY
     Route: 048
     Dates: start: 20190514, end: 20190611
  18. ABIRATERONE ACETATE. [Suspect]
     Active Substance: ABIRATERONE ACETATE
     Dosage: 4 WEEKS 0 DAYS
     Route: 048
     Dates: start: 20190612, end: 20190709
  19. ABIRATERONE ACETATE. [Suspect]
     Active Substance: ABIRATERONE ACETATE
     Dosage: 4 WEEKS 0 DAYS
     Route: 048
     Dates: start: 20191224, end: 20200120
  20. PREDNISOLONE. [Suspect]
     Active Substance: PREDNISOLONE
     Dosage: 2 WEEKS 0 DAYS
     Route: 048
     Dates: start: 20190916, end: 20190929
  21. PREDNISOLONE. [Suspect]
     Active Substance: PREDNISOLONE
     Dosage: 4 WEEKS 1 DAY
     Route: 048
     Dates: start: 20200218, end: 20200317
  22. COCODAMOL [Concomitant]
     Active Substance: ACETAMINOPHEN\CODEINE PHOSPHATE
     Indication: PAIN
     Dosage: 1 TO 2 TAKEN 4 TIMES PER DAY
     Route: 048
  23. PROVERA [Concomitant]
     Active Substance: MEDROXYPROGESTERONE ACETATE
     Indication: HOT FLUSH
     Route: 048
  24. ABIRATERONE ACETATE. [Suspect]
     Active Substance: ABIRATERONE ACETATE
     Dosage: 1WEEK 5 DAYS
     Route: 048
     Dates: start: 20190710, end: 20190721
  25. ABIRATERONE ACETATE. [Suspect]
     Active Substance: ABIRATERONE ACETATE
     Dosage: 4 WEEKS 0 DAYS
     Route: 048
     Dates: start: 20190930, end: 20191027
  26. PREDNISOLONE. [Suspect]
     Active Substance: PREDNISOLONE
     Dosage: 4 WEEKS 0 DAYS
     Route: 048
     Dates: start: 20190612, end: 20190709
  27. PREDNISOLONE. [Suspect]
     Active Substance: PREDNISOLONE
     Dosage: 14 WEEKS 6 DAYS
     Route: 048
     Dates: start: 20190710, end: 20191021
  28. PREDNISOLONE. [Suspect]
     Active Substance: PREDNISOLONE
     Dosage: 4 WEEKS 0 DAYS
     Route: 048
     Dates: start: 20190819, end: 20190915
  29. PREDNISOLONE. [Suspect]
     Active Substance: PREDNISOLONE
     Dosage: 4 WEEKS 0 DAYS
     Route: 048
     Dates: start: 20190930, end: 20191027
  30. PREDNISOLONE. [Suspect]
     Active Substance: PREDNISOLONE
     Dosage: 4 WEEKS 0 DAYS
     Route: 048
     Dates: start: 20200121, end: 20200217
  31. ABIRATERONE ACETATE. [Suspect]
     Active Substance: ABIRATERONE ACETATE
     Dosage: 4 WEEKS 0 DAYS
     Route: 048
     Dates: start: 20190819, end: 20190915
  32. ABIRATERONE ACETATE. [Suspect]
     Active Substance: ABIRATERONE ACETATE
     Dosage: 4 WEEKS 0 DAYS
     Route: 048
     Dates: start: 20200318, end: 20200414
  33. PREDNISOLONE. [Suspect]
     Active Substance: PREDNISOLONE
     Dosage: 8 WEEKS 1 DAY
     Route: 048
     Dates: start: 20191028, end: 20191223
  34. ALLOPURINOL. [Concomitant]
     Active Substance: ALLOPURINOL
     Indication: GOUT
     Route: 048
  35. ABIRATERONE ACETATE. [Suspect]
     Active Substance: ABIRATERONE ACETATE
     Route: 048
     Dates: start: 20200415, end: 20200519
  36. PERINDOPRIL ERBUMINE. [Concomitant]
     Active Substance: PERINDOPRIL ERBUMINE
     Indication: HYPERTENSION
     Route: 048
  37. TILDIEM LA [Concomitant]
     Active Substance: DILTIAZEM HYDROCHLORIDE
     Indication: HYPERTENSION
     Route: 048

REACTIONS (1)
  - Acute coronary syndrome [Recovered/Resolved]

NARRATIVE: CASE EVENT DATE: 20200512
